FAERS Safety Report 17629802 (Version 1)
Quarter: 2020Q2

REPORT INFORMATION
  Report Type: Other
  Country: GB (occurrence: GB)
  Receive Date: 20200406
  Receipt Date: 20200406
  Transmission Date: 20200713
  Serious: Yes (Other)
  Sender: FDA-Public Use
  Company Number: GB-GE HEALTHCARE LIFE SCIENCES-2020CSU001321

PATIENT

DRUGS (2)
  1. OMNIPAQUE [Suspect]
     Active Substance: IOHEXOL
     Indication: COMPUTERISED TOMOGRAM PELVIS
     Dosage: 80 ML, SINGLE
     Route: 042
     Dates: start: 20200121, end: 20200121
  2. OMNIPAQUE [Suspect]
     Active Substance: IOHEXOL
     Indication: PRODUCT USED FOR UNKNOWN INDICATION

REACTIONS (11)
  - Chills [Unknown]
  - Somnolence [Unknown]
  - Rash [Unknown]
  - Feeling hot [Unknown]
  - Confusional state [Unknown]
  - Nausea [Unknown]
  - Feeling abnormal [Unknown]
  - Contrast media allergy [Recovered/Resolved]
  - Dysarthria [Unknown]
  - Dizziness [Unknown]
  - Feeling cold [Unknown]

NARRATIVE: CASE EVENT DATE: 20200121
